FAERS Safety Report 8800153 (Version 1)
Quarter: 2012Q4

REPORT INFORMATION
  Report Type: 
  Country: AR (occurrence: AR)
  Receive Date: 20120921
  Receipt Date: 20120921
  Transmission Date: 20130627
  Serious: Yes (Death)
  Sender: FDA-Public Use
  Company Number: PHHY2012AR081930

PATIENT
  Sex: Male

DRUGS (1)
  1. EXELON PATCH [Suspect]
     Indication: DEMENTIA ALZHEIMER^S TYPE
     Dosage: 4.6 mg/24 hours (5 cms)
     Route: 062
     Dates: start: 2011, end: 201202

REACTIONS (2)
  - Pneumonia [Fatal]
  - Urinary tract infection [Fatal]
